FAERS Safety Report 6647727-9 (Version None)
Quarter: 2010Q1

REPORT INFORMATION
  Report Type: 
  Country: None (occurrence: None)
  Receive Date: 20100323
  Receipt Date: 20100323
  Transmission Date: 20100710
  Serious: No
  Sender: FDA-Public Use
  Company Number: None

PATIENT
  Sex: Female
  Weight: 72.5755 kg

DRUGS (2)
  1. ACTONEL [Suspect]
     Indication: OSTEOPENIA
     Dosage: 150 MG 1 PER MONTH ORAL 35 MG 1 PER WEEK ORAL
     Route: 048
  2. ACTONEL [Suspect]
     Indication: OSTEOPENIA
     Dosage: 150 MG 1 PER MONTH ORAL 35 MG 1 PER WEEK ORAL
     Route: 048

REACTIONS (3)
  - ARTHRALGIA [None]
  - CARPAL TUNNEL SYNDROME [None]
  - MYALGIA [None]
